FAERS Safety Report 4323655-9 (Version None)
Quarter: 2004Q1

REPORT INFORMATION
  Report Type: 
  Country: None (occurrence: None)
  Receive Date: 20040326
  Receipt Date: 20040318
  Transmission Date: 20041129
  Serious: Yes (Other)
  Sender: FDA-Public Use
  Company Number: PHBS2004BR03795

PATIENT
  Sex: Male

DRUGS (1)
  1. CATAFLAM [Suspect]

REACTIONS (3)
  - LARYNGEAL OEDEMA [None]
  - RASH [None]
  - RASH GENERALISED [None]
